FAERS Safety Report 9826693 (Version 1)
Quarter: 2014Q1

REPORT INFORMATION
  Report Type: Spontaneous
  Country: US (occurrence: None)
  Receive Date: 20140116
  Receipt Date: 20140116
  Transmission Date: 20141002
  Serious: Yes (Life-Threatening, Hospitalization, Disabling, Other)
  Sender: FDA-Public Use
  Company Number: None

PATIENT
  Age: 52 Year
  Sex: Female
  Weight: 68.04 kg

DRUGS (2)
  1. LISINOPRIL [Suspect]
     Indication: HYPERTENSION
     Dosage: 1 PILL PER DAY  1 A DAY ,   ??6- 210?OCT 2013
     Route: 048
     Dates: end: 201310
  2. HYDROCHLOROTHIAZIDE [Concomitant]

REACTIONS (3)
  - Abdominal pain [None]
  - Hyperhidrosis [None]
  - Asthenia [None]
